FAERS Safety Report 8614301-4 (Version None)
Quarter: 2012Q3

REPORT INFORMATION
  Report Type: 
  Country: None (occurrence: None)
  Receive Date: 20120823
  Receipt Date: 20120820
  Transmission Date: 20120928
  Serious: Yes (Hospitalization)
  Sender: FDA-Public Use
  Company Number: US-BAYER-2012-062861

PATIENT
  Age: 63 Year
  Sex: Female
  Weight: 68.481 kg

DRUGS (17)
  1. BETASERON [Suspect]
     Indication: MULTIPLE SCLEROSIS
     Dosage: 0.25 MG, QOD
     Route: 058
     Dates: start: 20110101
  2. CALCIUM CARBONATE W/COLECALCIFEROL [Concomitant]
  3. DILTIAZEM HCL [Concomitant]
     Dosage: 120 MG, UNK
     Route: 048
  4. TRAMADOL HCL CF [Concomitant]
     Dosage: 50 MG, PRN
     Route: 048
  5. ASPIRIN [Concomitant]
     Dosage: 325 MG, UNK
     Route: 048
  6. OMEPRAZOLE [Concomitant]
     Dosage: 20 MG, UNK
     Route: 048
  7. METOCLOPRAMIDE [Concomitant]
     Dosage: 5 MG Q6H PRN
  8. LACTULOSE [Concomitant]
     Dosage: 10 G/15ML
  9. ALLEGRA [Concomitant]
     Dosage: 1 UNK, UNK
  10. RANITIDINE [Concomitant]
     Dosage: 150 MG, UNK
     Route: 048
  11. BETASERON [Suspect]
     Dosage: UNK
     Dates: start: 20010101
  12. FOLIC ACID W/PYRIDO. HCL/TOCOPH./VIT B12 NOS [Concomitant]
     Dosage: 2.2-25-1 MG
  13. OXYBUTYNIN CHLORIDE [Concomitant]
     Dosage: 10 MG, UNK
     Route: 048
  14. BACLOFEN [Concomitant]
     Dosage: 20 MG, UNK
     Route: 048
  15. BUPROPION HYDROCHLORIDE [Concomitant]
     Dosage: 150 MG, UNK
     Route: 048
  16. GABAPENTIN [Concomitant]
     Dosage: 300 MG, 2 CAPS HS
  17. ROSUVASTATIN [Concomitant]
     Dosage: 40 MG, UNK

REACTIONS (3)
  - NON-CARDIAC CHEST PAIN [None]
  - MIGRAINE [None]
  - GASTROOESOPHAGEAL REFLUX DISEASE [None]
